FAERS Safety Report 18345234 (Version 16)
Quarter: 2021Q4

REPORT INFORMATION
  Report Type: Report from Study
  Country: CN (occurrence: None)
  Receive Date: 20201005
  Receipt Date: 20211104
  Transmission Date: 20220303
  Serious: Yes (Hospitalization)
  Sender: FDA-Public Use
  Company Number: CN-EISAI MEDICAL RESEARCH-EC-2020-081571

PATIENT
  Age: 65 Year
  Sex: Male
  Weight: 51 kg

DRUGS (9)
  1. LENVATINIB [Suspect]
     Active Substance: LENVATINIB
     Indication: Hepatocellular carcinoma
     Route: 048
     Dates: start: 20200122
  2. PEMBROLIZUMAB [Suspect]
     Active Substance: PEMBROLIZUMAB
     Indication: Hepatocellular carcinoma
     Route: 041
     Dates: start: 20200122, end: 20200820
  3. PEMBROLIZUMAB [Suspect]
     Active Substance: PEMBROLIZUMAB
     Route: 041
     Dates: start: 20200908, end: 20200908
  4. PEMBROLIZUMAB [Suspect]
     Active Substance: PEMBROLIZUMAB
     Route: 041
     Dates: start: 20200929, end: 20200929
  5. PEMBROLIZUMAB [Suspect]
     Active Substance: PEMBROLIZUMAB
     Route: 041
     Dates: start: 20201022
  6. ENTECAVIR [Concomitant]
     Active Substance: ENTECAVIR
     Dates: start: 20160921, end: 20201024
  7. NIFEDIPINE [Concomitant]
     Active Substance: NIFEDIPINE
     Dates: start: 20200107, end: 20201024
  8. SQUALENE [Concomitant]
     Active Substance: SQUALENE
     Dates: start: 20200710, end: 20201024
  9. GLUTATHIONE [Concomitant]
     Active Substance: GLUTATHIONE
     Dates: start: 20200908, end: 20201024

REACTIONS (1)
  - Hepatic function abnormal [Recovered/Resolved]

NARRATIVE: CASE EVENT DATE: 20200928
